FAERS Safety Report 6894676-7 (Version None)
Quarter: 2010Q3

REPORT INFORMATION
  Report Type: 
  Country: None (occurrence: None)
  Receive Date: 20100802
  Receipt Date: 20100723
  Transmission Date: 20110219
  Serious: Yes (Other)
  Sender: FDA-Public Use
  Company Number: DE-SANOFI-AVENTIS-2010SA039380

PATIENT
  Age: 64 Year
  Sex: Male
  Weight: 80 kg

DRUGS (7)
  1. MULTAQ [Suspect]
     Indication: ATRIAL FIBRILLATION
     Route: 048
     Dates: start: 20100622
  2. MARCUMAR [Concomitant]
     Indication: ATRIAL FIBRILLATION
     Route: 065
     Dates: start: 20080101, end: 20100101
  3. MARCUMAR [Concomitant]
     Route: 065
     Dates: start: 20100101
  4. BISOHEXAL [Concomitant]
     Indication: HYPERTENSION
     Route: 048
     Dates: start: 20090101
  5. RAMIPRIL [Concomitant]
     Indication: HYPERTENSION
     Route: 048
     Dates: start: 20090101
  6. TORSEMIDE [Concomitant]
     Indication: HYPERTENSION
     Route: 048
     Dates: start: 20090101
  7. PREDNISOLON [Concomitant]
     Indication: PRODUCT USED FOR UNKNOWN INDICATION
     Route: 048
     Dates: start: 20100101

REACTIONS (2)
  - HEART RATE IRREGULAR [None]
  - PROTHROMBIN TIME PROLONGED [None]
